FAERS Safety Report 17077197 (Version 1)
Quarter: 2019Q4

REPORT INFORMATION
  Report Type: Spontaneous
  Country: JP (occurrence: JP)
  Receive Date: 20191126
  Receipt Date: 20191126
  Transmission Date: 20200122
  Serious: Yes (Hospitalization)
  Sender: FDA-Public Use
  Company Number: JP-GLAXOSMITHKLINE-JP2019208513

PATIENT
  Sex: Female

DRUGS (1)
  1. RELVAR ELLIPTA [Suspect]
     Active Substance: FLUTICASONE FUROATE\VILANTEROL TRIFENATATE
     Dosage: 200 ?G, U
     Route: 055
     Dates: start: 2019

REACTIONS (5)
  - Erythema [Unknown]
  - Hospitalisation [Unknown]
  - Rash [Unknown]
  - Therapy cessation [Unknown]
  - Eczema [Unknown]

NARRATIVE: CASE EVENT DATE: 20191113
